FAERS Safety Report 10551970 (Version 1)
Quarter: 2014Q4

REPORT INFORMATION
  Report Type: Report from Study
  Country: US (occurrence: US)
  Receive Date: 20141029
  Receipt Date: 20141029
  Transmission Date: 20150529
  Serious: Yes (Life-Threatening, Hospitalization)
  Sender: FDA-Public Use
  Company Number: US-ROCHE-1478851

PATIENT
  Age: 32 Year
  Sex: Female
  Weight: 62.8 kg

DRUGS (6)
  1. PERTUZUMAB [Suspect]
     Active Substance: PERTUZUMAB
     Indication: BREAST CANCER
     Dosage: CYCLE 1?MOST RECENT DOSE RECEIVED PRIOR TO SAE: 15/MAY/2014.
     Route: 042
     Dates: start: 20140515
  2. TRASTUZUMAB [Suspect]
     Active Substance: TRASTUZUMAB
     Dosage: CYCLE 2 TO 6
     Route: 042
  3. DOCETAXEL. [Suspect]
     Active Substance: DOCETAXEL
     Indication: BREAST CANCER
     Dosage: CYCLE 1?MOST RECENT DOSE RECEIVED PRIOR TO SAE: 15/MAY/2014.
     Route: 042
     Dates: start: 20140515
  4. CARBOPLATIN. [Suspect]
     Active Substance: CARBOPLATIN
     Indication: BREAST CANCER
     Dosage: AUC=6 MG/ML/MIN?MOST RECENT DOSE RECEIVED PRIOR TO SAE: 15/MAY/2014.
     Route: 042
     Dates: start: 20140515
  5. TRASTUZUMAB [Suspect]
     Active Substance: TRASTUZUMAB
     Indication: BREAST CANCER
     Dosage: CYCLE 1?MOST RECENT DOSE RECEIVED PRIOR TO SAE: 15/MAY/2014.
     Route: 042
     Dates: start: 20140515
  6. PERTUZUMAB [Suspect]
     Active Substance: PERTUZUMAB
     Dosage: CYCLE 2 TO 6
     Route: 042

REACTIONS (3)
  - Platelet count decreased [Unknown]
  - Vertigo [Unknown]
  - Sinus tachycardia [Recovered/Resolved]

NARRATIVE: CASE EVENT DATE: 20140518
